FAERS Safety Report 7430050-2 (Version None)
Quarter: 2011Q2

REPORT INFORMATION
  Report Type: 
  Country: None (occurrence: None)
  Receive Date: 20110421
  Receipt Date: 20090209
  Transmission Date: 20111010
  Serious: Yes (Hospitalization, Other)
  Sender: FDA-Public Use
  Company Number: US-BAYER-200912398NA

PATIENT
  Age: 63 Year
  Sex: Male
  Weight: 79.365 kg

DRUGS (27)
  1. HEPARIN [Concomitant]
     Dosage: 50 MG, UNK
     Dates: start: 20021029
  2. PALPYLESINE [Concomitant]
     Indication: PRODUCT USED FOR UNKNOWN INDICATION
     Dosage: 60 MG, UNK
  3. CORDARONE [Concomitant]
  4. ZOCOR [Concomitant]
     Indication: PRODUCT USED FOR UNKNOWN INDICATION
     Dosage: 10 MG, UNK (LONG TERM)
     Route: 048
     Dates: start: 20021027
  5. HEPARIN [Concomitant]
     Indication: PRODUCT USED FOR UNKNOWN INDICATION
     Dosage: 50 MG 200 MG INITIAL DOSE
     Dates: start: 20021029
  6. PLASMA-LYTE A [Concomitant]
     Indication: PRODUCT USED FOR UNKNOWN INDICATION
     Dosage: 1100 ML (PRIMING SOLUTION), UNK
     Dates: start: 20021029
  7. SEVE [Concomitant]
     Indication: PRODUCT USED FOR UNKNOWN INDICATION
     Dosage: 10 UNK
     Dates: start: 20021029
  8. ZAROXOLYN [Concomitant]
  9. NITROGLYCERIN [Concomitant]
     Indication: PRODUCT USED FOR UNKNOWN INDICATION
     Dosage: UNK
     Dates: start: 20021029
  10. HEMOCONCETRATOR [Concomitant]
     Indication: PRODUCT USED FOR UNKNOWN INDICATION
     Dosage: 600 ML TOTAL VOLUME, UNK
     Dates: start: 20021029
  11. DOBUTAMINE HCL [Concomitant]
  12. TRASYLOL [Suspect]
     Indication: CARDIAC OPERATION
     Dosage: 2000000 U (PRIMING SOLUTION), UNK
     Route: 042
     Dates: start: 20021029
  13. ALTACE [Concomitant]
     Indication: PRODUCT USED FOR UNKNOWN INDICATION
     Dosage: 10 MG, UNK (LONG TERM)
     Route: 048
  14. VERSED [Concomitant]
     Indication: PRODUCT USED FOR UNKNOWN INDICATION
     Dosage: 20 UNK
     Dates: start: 20021029
  15. BUMEX [Concomitant]
  16. ISOVUE-128 [Concomitant]
     Indication: PRODUCT USED FOR UNKNOWN INDICATION
     Dosage: 150 ML, UNK
     Route: 042
     Dates: start: 20021028
  17. MANNITOL [Concomitant]
     Indication: PRODUCT USED FOR UNKNOWN INDICATION
     Dosage: 12.5 G (PRIMING SOLUTION), UNK
     Dates: start: 20021029
  18. ANCEF [Concomitant]
     Indication: PRODUCT USED FOR UNKNOWN INDICATION
     Dosage: 2 G, UNK
     Route: 042
     Dates: start: 20021029
  19. ALMACL [Concomitant]
     Indication: PRODUCT USED FOR UNKNOWN INDICATION
     Dosage: UNK
     Dates: start: 20021029
  20. ACETYLSALICYLIC ACID SRT [Concomitant]
     Indication: PRODUCT USED FOR UNKNOWN INDICATION
     Dosage: 325 MG, QD
     Route: 048
     Dates: start: 20021028
  21. FENTANYL [Concomitant]
     Indication: PRODUCT USED FOR UNKNOWN INDICATION
     Dosage: 10 UNK
     Dates: start: 20021029
  22. TRASYLOL [Suspect]
     Indication: CORONARY ARTERY BYPASS
  23. PLAVIX [Concomitant]
     Indication: PRODUCT USED FOR UNKNOWN INDICATION
     Dosage: 75 MG, QD (LONG TERM)
     Route: 048
     Dates: end: 20021028
  24. LOTENSIN [Concomitant]
     Indication: PRODUCT USED FOR UNKNOWN INDICATION
     Dosage: 10 MG, QD
     Route: 048
     Dates: end: 20021028
  25. LIDOCAINE [Concomitant]
     Indication: PRODUCT USED FOR UNKNOWN INDICATION
     Dosage: UNK
     Route: 061
     Dates: start: 20021029
  26. SODIUM BICARBONATE [Concomitant]
     Indication: PRODUCT USED FOR UNKNOWN INDICATION
     Dosage: 44.6 MEQ (PRIMING SOLUTION), UNK
     Dates: start: 20021029
  27. PACKED RED BLOOD CELLS [Concomitant]
     Indication: PRODUCT USED FOR UNKNOWN INDICATION
     Dosage: UNK
     Dates: start: 20021031

REACTIONS (7)
  - RENAL FAILURE ACUTE [None]
  - PAIN [None]
  - INJURY [None]
  - RENAL FAILURE [None]
  - EMOTIONAL DISTRESS [None]
  - RENAL INJURY [None]
  - UNEVALUABLE EVENT [None]
